FAERS Safety Report 10203818 (Version 1)
Quarter: 2014Q2

REPORT INFORMATION
  Report Type: Spontaneous
  Country: US (occurrence: None)
  Receive Date: 20140527
  Receipt Date: 20140527
  Transmission Date: 20141212
  Serious: Yes (Death)
  Sender: FDA-Public Use
  Company Number: None

PATIENT
  Age: 62 Year
  Sex: Female

DRUGS (11)
  1. ALTEPLASE [Suspect]
     Indication: PULMONARY EMBOLISM
     Route: 042
     Dates: start: 20120703, end: 20120703
  2. HEPARIN [Concomitant]
  3. SODIUM BICARBONATE [Concomitant]
  4. ALLOPURINOL [Concomitant]
  5. LEVOTHYROXINE [Concomitant]
  6. METHYLPREDNISOLONE [Concomitant]
  7. CEFEPIME [Concomitant]
  8. VANCOMYCIN [Concomitant]
  9. EPINEPHRINE [Concomitant]
  10. PHENYLEPHRINE [Concomitant]
  11. DOBUTAMINE [Concomitant]

REACTIONS (5)
  - Intra-abdominal haemorrhage [None]
  - Pulseless electrical activity [None]
  - Cardiac arrest [None]
  - Haemoglobin decreased [None]
  - Abdominal discomfort [None]
